FAERS Safety Report 13504464 (Version 1)
Quarter: 2017Q2

REPORT INFORMATION
  Report Type: Spontaneous
  Country: US (occurrence: US)
  Receive Date: 20170502
  Receipt Date: 20170502
  Transmission Date: 20170830
  Serious: No
  Sender: FDA-Public Use
  Company Number: US-ALLERGAN-2016-001366

PATIENT
  Sex: Female

DRUGS (1)
  1. FEMRING [Suspect]
     Active Substance: ESTRADIOL ACETATE
     Indication: HORMONE REPLACEMENT THERAPY
     Dosage: 1 RING EVERY 8 WEEKS
     Route: 067
     Dates: start: 2009

REACTIONS (2)
  - Therapeutic product ineffective [Unknown]
  - Inappropriate schedule of drug administration [Unknown]
